FAERS Safety Report 7792582-7 (Version None)
Quarter: 2011Q4

REPORT INFORMATION
  Report Type: 
  Country: None (occurrence: None)
  Receive Date: 20111003
  Receipt Date: 20110921
  Transmission Date: 20120403
  Serious: Yes (Hospitalization, Other)
  Sender: FDA-Public Use
  Company Number: US-BAYER-2011-006603

PATIENT
  Age: 29 Year
  Sex: Female
  Weight: 68.027 kg

DRUGS (19)
  1. VICODIN [Concomitant]
  2. YASMIN [Suspect]
     Indication: PREMENSTRUAL SYNDROME
  3. PRAVASTATIN SODIUM [Concomitant]
  4. ACIPHEX [Concomitant]
  5. DROSPIRENONE AND ETHINYL ESTRADIOL [Suspect]
     Indication: ORAL CONTRACEPTION
     Dosage: UNK
     Dates: start: 20071207, end: 20090701
  6. YAZ [Suspect]
  7. ZOLOFT [Concomitant]
  8. YASMIN [Suspect]
     Indication: ORAL CONTRACEPTION
     Dosage: UNK
     Dates: start: 20070101
  9. PERCOCET [Concomitant]
  10. VITAMIN B12 NOS [Concomitant]
  11. YASMIN [Suspect]
  12. PHENERGAN HCL [Concomitant]
  13. DROSPIRENONE AND ETHINYL ESTRADIOL [Suspect]
     Indication: PREMENSTRUAL SYNDROME
  14. ATIVAN [Concomitant]
  15. RANITIDINE [Concomitant]
  16. DROSPIRENONE AND ETHINYL ESTRADIOL [Suspect]
  17. YAZ [Suspect]
     Indication: ORAL CONTRACEPTION
     Dosage: UNK
     Dates: start: 20060101
  18. YAZ [Suspect]
     Indication: PREMENSTRUAL SYNDROME
  19. CYMBALTA [Concomitant]

REACTIONS (8)
  - DEEP VEIN THROMBOSIS [None]
  - ABDOMINAL PAIN [None]
  - PAIN [None]
  - BILIARY DYSKINESIA [None]
  - THROMBOSIS [None]
  - GALLBLADDER DISORDER [None]
  - CHOLECYSTITIS CHRONIC [None]
  - CHOLELITHIASIS [None]
